FAERS Safety Report 9732418 (Version 2)
Quarter: 2013Q4

REPORT INFORMATION
  Report Type: Spontaneous
  Country: US (occurrence: None)
  Receive Date: 20131203
  Receipt Date: 20131220
  Transmission Date: 20140711
  Serious: Yes (Hospitalization, Other)
  Sender: FDA-Public Use
  Company Number: AUR-APL-2013-10076

PATIENT
  Age: 68 Year
  Sex: Female

DRUGS (9)
  1. CIPROFLOXACIN (CIPROFLOXACIN) [Suspect]
     Indication: URINARY TRACT INFECTION
     Dosage: 1000 MG (500 MG, 2 IN 1 D)
     Dates: start: 2008
  2. ATORVASTATIN [Concomitant]
  3. DILTIAZEM [Concomitant]
  4. ESOMEPRAZOLE [Concomitant]
  5. LOSARTAN [Concomitant]
  6. COUMADIN (WARFARIN SODIUM) [Concomitant]
  7. LOSARTAN HYDROCHLOROTHIAZIDE (HYZAAR) [Concomitant]
  8. HYDRALAZINE [Concomitant]
  9. SOTALOL [Concomitant]

REACTIONS (2)
  - Asthenia [None]
  - Inappropriate antidiuretic hormone secretion [None]
